FAERS Safety Report 8535144-6 (Version None)
Quarter: 2012Q3

REPORT INFORMATION
  Report Type: 
  Country: None (occurrence: None)
  Receive Date: 20120724
  Receipt Date: 20120717
  Transmission Date: 20120928
  Serious: Yes (Hospitalization)
  Sender: FDA-Public Use
  Company Number: JP-PFIZER INC-2012172220

PATIENT

DRUGS (4)
  1. AMIODARONE HYDROCHLORIDE [Suspect]
     Indication: ARRHYTHMIA
     Dosage: 125 MG PER TEN MINUTES
     Route: 042
  2. AMIODARONE HYDROCHLORIDE [Suspect]
     Indication: CARDIO-RESPIRATORY ARREST
     Dosage: 750 MG, DAILY
  3. VECURONIUM BROMIDE [Suspect]
     Indication: HYPOTHERMIA
     Dosage: UNK
  4. PROPOFOL [Suspect]
     Indication: HYPOTHERMIA
     Dosage: UNK

REACTIONS (1)
  - VENTRICULAR EXTRASYSTOLES [None]
